FAERS Safety Report 16064536 (Version 1)
Quarter: 2019Q1

REPORT INFORMATION
  Report Type: Spontaneous
  Country: FR (occurrence: FR)
  Receive Date: 20190312
  Receipt Date: 20190312
  Transmission Date: 20190418
  Serious: Yes (Death)
  Sender: FDA-Public Use
  Company Number: FR-MYLANLABS-2019M1022543

PATIENT

DRUGS (1)
  1. MIDAZOLAM [Suspect]
     Active Substance: MIDAZOLAM HYDROCHLORIDE
     Indication: PRODUCT USED FOR UNKNOWN INDICATION
     Dosage: 39 MILLIGRAM
     Route: 042
     Dates: start: 20180716, end: 20180717

REACTIONS (2)
  - Device programming error [Fatal]
  - Overdose [Fatal]

NARRATIVE: CASE EVENT DATE: 20180716
